FAERS Safety Report 7830157-1 (Version None)
Quarter: 2011Q4

REPORT INFORMATION
  Report Type: 
  Country: None (occurrence: None)
  Receive Date: 20111021
  Receipt Date: 20111013
  Transmission Date: 20120403
  Serious: Yes (Death, Other)
  Sender: FDA-Public Use
  Company Number: NL-GENZYME-CERZ-1002276

PATIENT
  Sex: Female
  Weight: 100 kg

DRUGS (6)
  1. FENPROCOUMON RATIOPHARM [Concomitant]
     Indication: PRODUCT USED FOR UNKNOWN INDICATION
     Dosage: UNK
     Route: 065
  2. PANTOPRAZOLE SODIUM [Concomitant]
     Indication: PRODUCT USED FOR UNKNOWN INDICATION
     Dosage: 40 MG, UNK
     Route: 065
  3. CEREZYME [Suspect]
     Indication: GAUCHER'S DISEASE
     Dosage: 120 U/KG, Q4W
     Route: 042
     Dates: start: 19921001
  4. SPIRONOLACTONE [Concomitant]
  5. FUROSEMIDE [Concomitant]
  6. METOPROLOL TARTRATE [Concomitant]
     Indication: PRODUCT USED FOR UNKNOWN INDICATION
     Route: 065

REACTIONS (2)
  - RENAL FAILURE [None]
  - CARDIAC FAILURE [None]
